FAERS Safety Report 4649438-8 (Version None)
Quarter: 2005Q2

REPORT INFORMATION
  Report Type: 
  Country: None (occurrence: None)
  Receive Date: 20050502
  Receipt Date: 20050421
  Transmission Date: 20051028
  Serious: Yes (Hospitalization)
  Sender: FDA-Public Use
  Company Number: 200513456US

PATIENT
  Sex: Male
  Weight: 73.2 kg

DRUGS (1)
  1. DOCETAXEL [Suspect]
     Indication: PROSTATE CANCER
     Dates: end: 20050412

REACTIONS (5)
  - COORDINATION ABNORMAL [None]
  - DRUG TOXICITY [None]
  - FATIGUE [None]
  - INFECTION [None]
  - PYREXIA [None]
